FAERS Safety Report 20797703 (Version 1)
Quarter: 2022Q2

REPORT INFORMATION
  Report Type: Spontaneous
  Country: US (occurrence: None)
  Receive Date: 20220506
  Receipt Date: 20220506
  Transmission Date: 20220720
  Serious: No
  Sender: FDA-Public Use
  Company Number: None

PATIENT
  Sex: Female

DRUGS (1)
  1. MAKENA [Suspect]
     Active Substance: HYDROXYPROGESTERONE CAPROATE
     Indication: Premature labour
     Dosage: 275MG WEEKLY SUBCUTANEOUS?
     Route: 058
     Dates: end: 202205

REACTIONS (2)
  - Adverse drug reaction [None]
  - Therapy cessation [None]
